FAERS Safety Report 18636670 (Version 1)
Quarter: 2020Q4

REPORT INFORMATION
  Report Type: Spontaneous
  Country: FR (occurrence: FR)
  Receive Date: 20201218
  Receipt Date: 20201218
  Transmission Date: 20210114
  Serious: Yes (Other)
  Sender: FDA-Public Use
  Company Number: FR-MYLANLABS-2020M1102432

PATIENT
  Age: 4 Day
  Sex: Female
  Weight: 1.78 kg

DRUGS (16)
  1. VINBLASTINE SULFATE. [Suspect]
     Active Substance: VINBLASTINE SULFATE
     Indication: HODGKIN^S DISEASE
     Dosage: 5 MG/M2, 5 MILLIGRAM/SQ. METER, CYCLIC
     Route: 064
     Dates: start: 20171108
  2. LANSOPRAZOLE. [Suspect]
     Active Substance: LANSOPRAZOLE
     Indication: PRODUCT USED FOR UNKNOWN INDICATION
     Dosage: UNK
     Route: 064
  3. SODIUM CHLORIDE. [Suspect]
     Active Substance: SODIUM CHLORIDE
     Dosage: 20 ML
     Route: 064
  4. SODIUM CHLORIDE. [Suspect]
     Active Substance: SODIUM CHLORIDE
     Indication: HODGKIN^S DISEASE
     Dosage: 20 ML
     Route: 064
     Dates: start: 20171108
  5. GLUCOSE [Suspect]
     Active Substance: DEXTROSE
     Indication: PRODUCT USED FOR UNKNOWN INDICATION
     Dosage: UNK
     Route: 064
     Dates: start: 20171108
  6. ENOXAPARIN SODIUM. [Suspect]
     Active Substance: ENOXAPARIN SODIUM
     Indication: PRODUCT USED FOR UNKNOWN INDICATION
     Dosage: UNK UNK, QD
     Route: 064
     Dates: start: 2017
  7. DOXORUBICINE                       /00330902/ [Suspect]
     Active Substance: DOXORUBICIN HYDROCHLORIDE
     Indication: HODGKIN^S DISEASE
     Dosage: 25 MG/M2, 25 MILLIGRAM/SQ. METER, CYCLIC
     Route: 064
     Dates: start: 20171108
  8. BLEOMYCIN [Suspect]
     Active Substance: BLEOMYCIN SULFATE
     Indication: HODGKIN^S DISEASE
     Dosage: 10 MG/M2, 10 MILLIGRAM/SQ. METER, CYCLIC
     Route: 064
     Dates: start: 20171108
  9. DACARBAZINE. [Suspect]
     Active Substance: DACARBAZINE
     Dosage: 730 MG, 730 MILLIGRAM
     Route: 064
     Dates: start: 20171108
  10. PREDNISONE. [Suspect]
     Active Substance: PREDNISONE
     Indication: PRODUCT USED FOR UNKNOWN INDICATION
     Dosage: 40 MG, QD, 40 MILLIGRAM, QD
     Route: 064
  11. DACARBAZINE. [Suspect]
     Active Substance: DACARBAZINE
     Indication: HODGKIN^S DISEASE
     Dosage: 375 MG/M2X, 375 MILLIGRAM/SQ. METER
     Route: 064
  12. GLUCOSE [Suspect]
     Active Substance: DEXTROSE
     Dosage: UNK
     Route: 064
     Dates: start: 20171108
  13. AMOXICILLIN. [Suspect]
     Active Substance: AMOXICILLIN
     Indication: ANTIBIOTIC THERAPY
     Dosage: UNK
     Route: 064
  14. ONDANSETRON [Suspect]
     Active Substance: ONDANSETRON
     Indication: PROPHYLAXIS OF NAUSEA AND VOMITING
     Dosage: 16 MG, QD,  (8 MG BID)
     Route: 064
  15. DEXAMETHASONE. [Suspect]
     Active Substance: DEXAMETHASONE
     Indication: HODGKIN^S DISEASE
     Dosage: 10 MG, 10 MILLIGRAM
     Route: 064
     Dates: start: 20171108
  16. VALACICLOVIR [Suspect]
     Active Substance: VALACYCLOVIR HYDROCHLORIDE
     Indication: PRODUCT USED FOR UNKNOWN INDICATION
     Dosage: 500 MG, QD, 500 MILLIGRAM, QD
     Route: 064

REACTIONS (2)
  - Foetal exposure during pregnancy [Recovered/Resolved]
  - Premature baby [Recovered/Resolved]
